FAERS Safety Report 20811772 (Version 2)
Quarter: 2022Q3

REPORT INFORMATION
  Report Type: Report from Study
  Country: US (occurrence: US)
  Receive Date: 20220511
  Receipt Date: 20220729
  Transmission Date: 20221027
  Serious: Yes (Other)
  Sender: FDA-Public Use
  Company Number: US-BRISTOL-MYERS SQUIBB COMPANY-2022-029876

PATIENT
  Age: 63 Year
  Sex: Female
  Weight: 88.45 kg

DRUGS (2)
  1. POMALYST [Suspect]
     Active Substance: POMALIDOMIDE
     Indication: Plasma cell myeloma
     Route: 065
  2. POMALYST [Suspect]
     Active Substance: POMALIDOMIDE
     Dosage: 3 WEEKS, 1 WEEK OFF
     Route: 048
     Dates: start: 202009

REACTIONS (4)
  - Nasal polyps [Unknown]
  - Diarrhoea [Recovered/Resolved]
  - Plasmacytosis [Unknown]
  - Tooth disorder [Unknown]
